FAERS Safety Report 10143450 (Version 1)
Quarter: 2014Q2

REPORT INFORMATION
  Report Type: Spontaneous
  Country: AU (occurrence: AU)
  Receive Date: 20140430
  Receipt Date: 20140430
  Transmission Date: 20141212
  Serious: Yes (Other)
  Sender: FDA-Public Use
  Company Number: AU-ASTRAZENECA-2014SE28008

PATIENT
  Age: 405 Month
  Sex: Female

DRUGS (9)
  1. ZOLADEX [Suspect]
     Route: 058
     Dates: start: 200710
  2. ZOLADEX [Suspect]
     Route: 058
     Dates: start: 201206
  3. ZOMETA [Suspect]
     Indication: METASTASES TO BONE
     Dates: start: 200710
  4. LETROZOLE [Suspect]
     Indication: BREAST CANCER METASTATIC
     Route: 048
     Dates: start: 201104
  5. ABRAXANE [Concomitant]
  6. HORMONE NOS [Concomitant]
  7. TAXOTERE [Concomitant]
  8. XELODA [Concomitant]
     Dates: start: 201106
  9. XELODA [Concomitant]
     Dates: start: 201207

REACTIONS (11)
  - Breast cancer [Unknown]
  - Bone disorder [Unknown]
  - Bone lesion [Unknown]
  - Metastases to liver [Unknown]
  - Carbohydrate antigen 15-3 increased [Unknown]
  - Breast cancer metastatic [Unknown]
  - Musculoskeletal chest pain [Unknown]
  - Bone pain [Unknown]
  - Diarrhoea [Unknown]
  - Menopausal symptoms [Unknown]
  - Weight increased [Unknown]
